FAERS Safety Report 15940697 (Version 2)
Quarter: 2019Q2

REPORT INFORMATION
  Report Type: Spontaneous
  Country: US (occurrence: US)
  Receive Date: 20190208
  Receipt Date: 20190401
  Transmission Date: 20190711
  Serious: Yes (Other)
  Sender: FDA-Public Use
  Company Number: US-PFIZER INC-2019055412

PATIENT
  Age: 59 Year
  Sex: Female

DRUGS (2)
  1. VORICONAZOLE. [Suspect]
     Active Substance: VORICONAZOLE
     Dosage: 200 MG, 2X/DAY
     Route: 048
     Dates: start: 20190104, end: 201901
  2. VORICONAZOLE. [Suspect]
     Active Substance: VORICONAZOLE
     Dosage: 100 MG, 2X/DAY (2 TABLETS OF 50 MG EVERY 12 HOURS)
     Dates: start: 20190124

REACTIONS (2)
  - Fungal infection [Unknown]
  - Myeloid leukaemia [Unknown]
